FAERS Safety Report 10024046 (Version 1)
Quarter: 2014Q1

REPORT INFORMATION
  Report Type: Spontaneous
  Country: US (occurrence: US)
  Receive Date: 20140320
  Receipt Date: 20140320
  Transmission Date: 20141002
  Serious: No
  Sender: FDA-Public Use
  Company Number: US-MYLANLABS-2014S1004535

PATIENT
  Sex: Male

DRUGS (3)
  1. ATORVASTATIN CALCIUM TABLETS [Suspect]
     Indication: BLOOD CHOLESTEROL INCREASED
     Route: 048
     Dates: start: 2013, end: 201312
  2. DIPYRIDAMOLE [Concomitant]
     Dates: start: 2001
  3. ECOTRIN [Concomitant]
     Dates: start: 2001

REACTIONS (2)
  - Depressed mood [Recovered/Resolved]
  - Cataract [Recovered/Resolved]
